FAERS Safety Report 8407435-0 (Version None)
Quarter: 2012Q2

REPORT INFORMATION
  Report Type: 
  Country: None (occurrence: None)
  Receive Date: 20120323
  Receipt Date: 20111130
  Transmission Date: 20120825
  Serious: Yes (Other)
  Sender: FDA-Public Use
  Company Number: 163-21880-11120109

PATIENT
  Age: 82 Year
  Sex: Male
  Weight: 71.67 kg

DRUGS (1)
  1. REVLIMID [Suspect]
     Indication: MYELODYSPLASTIC SYNDROME
     Dosage: 10 MG, 2 IN 1 D, PO
     Route: 048
     Dates: start: 20111101, end: 20111101

REACTIONS (1)
  - THROMBOSIS [None]
